FAERS Safety Report 7144784-0 (Version None)
Quarter: 2010Q4

REPORT INFORMATION
  Report Type: 
  Country: None (occurrence: None)
  Receive Date: 20101208
  Receipt Date: 20101129
  Transmission Date: 20110411
  Serious: Yes (Hospitalization, Other)
  Sender: FDA-Public Use
  Company Number: US-ELI_LILLY_AND_COMPANY-US201011004114

PATIENT
  Sex: Female

DRUGS (6)
  1. FORTEO [Suspect]
     Indication: OSTEOPOROSIS
     Dosage: 20 UG, DAILY (1/D)
     Route: 065
  2. CYMBALTA [Suspect]
  3. HUMALOG [Suspect]
  4. COUMADIN [Concomitant]
  5. DIOVAN [Concomitant]
  6. ANTIHYPERTENSIVES [Concomitant]

REACTIONS (10)
  - ASTHENIA [None]
  - DECREASED APPETITE [None]
  - DECUBITUS ULCER [None]
  - DIABETES MELLITUS [None]
  - DRUG HYPERSENSITIVITY [None]
  - GAIT DISTURBANCE [None]
  - RASH [None]
  - SKIN DISCOLOURATION [None]
  - WOUND DRAINAGE [None]
  - WOUND INFECTION [None]
